FAERS Safety Report 8355915-9 (Version None)
Quarter: 2012Q2

REPORT INFORMATION
  Report Type: 
  Country: None (occurrence: None)
  Receive Date: 20120514
  Receipt Date: 20120504
  Transmission Date: 20120825
  Serious: Yes (Hospitalization, Other)
  Sender: FDA-Public Use
  Company Number: US-BAYER-2011-075002

PATIENT
  Age: 32 Year
  Sex: Female
  Weight: 132 kg

DRUGS (11)
  1. ATENOLOL [Concomitant]
     Indication: HYPERTENSION
     Dosage: 50 MG, UNK
     Route: 048
     Dates: start: 20080101
  2. YAZ [Suspect]
     Indication: PREMENSTRUAL SYNDROME
     Dosage: UNK
     Dates: start: 20070101, end: 20070101
  3. YAZ [Suspect]
  4. IBUPROFEN [Concomitant]
     Dosage: UNK
     Dates: start: 19990101
  5. LEVOXYL [Concomitant]
     Indication: THYROID DISORDER
     Dosage: 300 ?G, UNK
     Route: 048
     Dates: start: 19990101
  6. PRILOSEC [Concomitant]
     Route: 048
  7. NAPROXEN SODIUM W/PSEUDOEPHEDRINE HCL [Concomitant]
     Dosage: UNK
     Dates: start: 19990101
  8. FLEXERIL [Concomitant]
     Dosage: 10 MG, TID
     Route: 048
     Dates: start: 20080101
  9. ASPIRIN [Concomitant]
     Dosage: 81 MG, DAILY
     Route: 048
     Dates: start: 20080101
  10. ZOMIG [Concomitant]
     Indication: MIGRAINE
     Dosage: UNK
     Dates: start: 20040101
  11. LEVOXYL [Concomitant]

REACTIONS (5)
  - CHOLELITHIASIS [None]
  - PAIN [None]
  - GALLBLADDER INJURY [None]
  - INJURY [None]
  - DEHYDRATION [None]
